FAERS Safety Report 19724101 (Version 1)
Quarter: 2021Q3

REPORT INFORMATION
  Report Type: Spontaneous
  Country: GB (occurrence: GB)
  Receive Date: 20210819
  Receipt Date: 20210819
  Transmission Date: 20211014
  Serious: Yes (Other)
  Sender: FDA-Public Use
  Company Number: GB-MYLANLABS-2021M1052756

PATIENT
  Age: 87 Year
  Sex: Female
  Weight: 54 kg

DRUGS (11)
  1. ALENDRONIC ACID [Concomitant]
     Active Substance: ALENDRONIC ACID
     Dosage: 1 DOSAGE FORM, QW
     Dates: start: 20210127
  2. LISINOPRIL. [Suspect]
     Active Substance: LISINOPRIL
     Indication: PRODUCT USED FOR UNKNOWN INDICATION
     Dosage: 20 MILLIGRAM, QD
     Dates: start: 20201023
  3. ASPIRIN                            /00002701/ [Concomitant]
     Active Substance: ASPIRIN
     Dosage: 1 DOSAGE FORM, QD
     Dates: start: 20201023
  4. BISOPROLOL [Concomitant]
     Active Substance: BISOPROLOL
     Dosage: 1 DOSAGE FORM, QD
     Dates: start: 20201023
  5. SALBUTAMOL [Concomitant]
     Active Substance: ALBUTEROL
     Dosage: 1?2 DOSES THROUGH SPACER DEVICE UP TO FOU...
     Route: 055
     Dates: start: 20201023
  6. EZETIMIBE. [Concomitant]
     Active Substance: EZETIMIBE
     Dosage: 1 DOSAGE FORM, QD
     Dates: start: 20201023
  7. PREDNISOLONE. [Concomitant]
     Active Substance: PREDNISOLONE
     Dosage: AS DIRECTED.
     Dates: start: 20210426
  8. ESOMEPRAZOLE. [Concomitant]
     Active Substance: ESOMEPRAZOLE MAGNESIUM
     Indication: GASTRIC DISORDER
     Dosage: 1 DOSAGE FORM, QD
     Dates: start: 20201026
  9. GLYCERYL TRINITRATE [Concomitant]
     Active Substance: NITROGLYCERIN
     Dosage: SPRAY.
     Route: 060
     Dates: start: 20201023
  10. CANDESARTAN. [Concomitant]
     Active Substance: CANDESARTAN
     Dosage: 1 DOSAGE FORM, QD
     Dates: start: 20210811
  11. THEICAL D3 [Concomitant]
     Dosage: 1 DOSAGE FORM, QD
     Dates: start: 20210127

REACTIONS (2)
  - Hypokalaemia [Recovering/Resolving]
  - Condition aggravated [Recovering/Resolving]
